FAERS Safety Report 14306416 (Version 1)
Quarter: 2017Q4

REPORT INFORMATION
  Report Type: Report from Study
  Country: US (occurrence: US)
  Receive Date: 20171220
  Receipt Date: 20171220
  Transmission Date: 20180321
  Serious: Yes (Other)
  Sender: FDA-Public Use
  Company Number: PHHY2017US188718

PATIENT
  Age: 20 Month
  Sex: Male
  Weight: 13.5 kg

DRUGS (1)
  1. GSK2118436 [Suspect]
     Active Substance: DABRAFENIB
     Indication: OPTIC GLIOMA
     Dosage: 32 MG, BID (5.25 MG/KG/DAY)
     Route: 048
     Dates: start: 20161216, end: 20171010

REACTIONS (2)
  - Hepatic enzyme increased [Recovered/Resolved]
  - Otitis media [Unknown]

NARRATIVE: CASE EVENT DATE: 20171010
